FAERS Safety Report 23498928 (Version 1)
Quarter: 2024Q1

REPORT INFORMATION
  Report Type: Spontaneous
  Country: FR (occurrence: FR)
  Receive Date: 20240208
  Receipt Date: 20240208
  Transmission Date: 20240410
  Serious: Yes (Death)
  Sender: FDA-Public Use
  Company Number: FR-JNJFOC-20221155483

PATIENT
  Age: 88 Year
  Sex: Male

DRUGS (3)
  1. CYCLOPHOSPHAMIDE [Suspect]
     Active Substance: CYCLOPHOSPHAMIDE
     Indication: Plasma cell myeloma
     Dosage: 600 MG, 4 WEEK(S)/CYCLE; TREATMENT LINE NUMBER 1, DURATION: 0.5 MONTHS
     Route: 065
     Dates: end: 20191201
  2. DEXAMETHASONE [Suspect]
     Active Substance: DEXAMETHASONE
     Indication: Plasma cell myeloma
     Dosage: 20 MG, 4 WEEK(S)/CYCLE, TREATMENT LINE NUMBER 1, DURATION: 0.5 MONTHS
     Route: 065
     Dates: end: 20191201
  3. VELCADE [Suspect]
     Active Substance: BORTEZOMIB
     Indication: Plasma cell myeloma
     Dosage: 2.5 MG, 4 WEEK(S)/CYCLE, TREATMENT LINE NUMBER 1, DURATION: 0.5 MONTHS
     Route: 065
     Dates: end: 20191201

REACTIONS (3)
  - Sepsis [Fatal]
  - Intentional product use issue [Unknown]
  - Off label use [Unknown]
